FAERS Safety Report 18507572 (Version 1)
Quarter: 2020Q4

REPORT INFORMATION
  Report Type: Spontaneous
  Country: FR (occurrence: FR)
  Receive Date: 20201116
  Receipt Date: 20201116
  Transmission Date: 20210114
  Serious: Yes (Other)
  Sender: FDA-Public Use
  Company Number: FR-MYLANLABS-2020M1016224

PATIENT
  Age: 15 Year
  Sex: Male

DRUGS (5)
  1. ARSENIC TRIOXIDE. [Suspect]
     Active Substance: ARSENIC TRIOXIDE
     Indication: ACUTE PROMYELOCYTIC LEUKAEMIA
     Dosage: 0.15 MILLIGRAM/KILOGRAM
     Route: 042
  2. HYDROXYUREA. [Suspect]
     Active Substance: HYDROXYUREA
     Indication: ACUTE PROMYELOCYTIC LEUKAEMIA
     Dosage: UNK
  3. HYDROXYCARBAMIDE [Suspect]
     Active Substance: HYDROXYUREA
     Indication: ACUTE PROMYELOCYTIC LEUKAEMIA
     Dosage: UNK
  4. TRETINOIN. [Suspect]
     Active Substance: TRETINOIN
     Indication: ACUTE PROMYELOCYTIC LEUKAEMIA
     Dosage: 25 MILLIGRAM/SQ. METER
     Route: 048
  5. DEXAMETHASONE. [Suspect]
     Active Substance: DEXAMETHASONE
     Indication: DIFFERENTIATION SYNDROME
     Dosage: 20 MILLIGRAM/SQ. METER, QD
     Route: 042

REACTIONS (4)
  - Neuropathy peripheral [Unknown]
  - Hypokalaemia [Unknown]
  - Intentional product use issue [Unknown]
  - White blood cell count increased [Recovering/Resolving]
